FAERS Safety Report 4504824-1 (Version None)
Quarter: 2004Q3

REPORT INFORMATION
  Report Type: 
  Country: None (occurrence: None)
  Receive Date: 20040927
  Receipt Date: 20040708
  Transmission Date: 20050211
  Serious: No
  Sender: FDA-Public Use
  Company Number: USA040772132

PATIENT
  Age: 50 Year
  Sex: Female
  Weight: 64 kg

DRUGS (5)
  1. STRATTERA [Suspect]
     Indication: ATTENTION DEFICIT/HYPERACTIVITY DISORDER
     Dosage: 40 MG DAY
     Dates: start: 20031001, end: 20040701
  2. WELLBUTRIN SR [Concomitant]
  3. NEURONTIN [Concomitant]
  4. TOPAMAX [Concomitant]
  5. CELEXA [Concomitant]

REACTIONS (1)
  - URINE ODOUR ABNORMAL [None]
